FAERS Safety Report 19313397 (Version 1)
Quarter: 2021Q2

REPORT INFORMATION
  Report Type: Spontaneous
  Country: US (occurrence: US)
  Receive Date: 20210526
  Receipt Date: 20210526
  Transmission Date: 20210717
  Serious: Yes (Death)
  Sender: FDA-Public Use
  Company Number: None

PATIENT
  Age: 81 Year
  Sex: Male

DRUGS (11)
  1. ENALAPRIL [Concomitant]
     Active Substance: ENALAPRIL
  2. HYDROMIORPHON [Concomitant]
  3. CAPECITABINE 500MG TAB [Suspect]
     Active Substance: CAPECITABINE
     Indication: COLON CANCER
     Dosage: 3 TABS BID PO ? 2 WK ON/ 1 WK OFF QM
     Route: 048
     Dates: start: 20190702, end: 20210514
  4. GABAPENTIN. [Concomitant]
     Active Substance: GABAPENTIN
  5. MEGESTROL AC [Concomitant]
  6. POT CHLORIDE ER [Concomitant]
  7. MELATONIN [Concomitant]
     Active Substance: MELATONIN
  8. PROCHLORPER [Concomitant]
  9. LIDO/PRILOCN CRE [Concomitant]
  10. MORPHINE SUL [Concomitant]
     Active Substance: MORPHINE SULFATE
  11. OXYCODONE [Concomitant]
     Active Substance: OXYCODONE

REACTIONS (1)
  - Death [None]

NARRATIVE: CASE EVENT DATE: 20210514
